FAERS Safety Report 6688031-2 (Version None)
Quarter: 2010Q2

REPORT INFORMATION
  Report Type: 
  Country: None (occurrence: None)
  Receive Date: 20100420
  Receipt Date: 20100408
  Transmission Date: 20101027
  Serious: Yes (Hospitalization, Other)
  Sender: FDA-Public Use
  Company Number: PHHY2010JP09431

PATIENT
  Sex: Male
  Weight: 69 kg

DRUGS (20)
  1. DIOVAN [Suspect]
     Indication: HYPERTENSION
     Dosage: 80 MG, QD
     Route: 048
     Dates: start: 20100119, end: 20100215
  2. ALLOPURINOL [Concomitant]
     Dosage: UNK
     Route: 048
  3. TAKEPRON [Concomitant]
     Dosage: UNK
     Route: 048
  4. SIGMART [Concomitant]
     Indication: ANGINA PECTORIS
     Dosage: 10 MG, UNK
     Route: 048
     Dates: start: 19990415
  5. ASPIRIN [Concomitant]
     Dosage: 100 MG DAILY
     Route: 048
  6. SELBEX [Concomitant]
     Dosage: 3 DF, UNK
     Route: 048
  7. CRESTOR [Concomitant]
     Dosage: 2.5 MG, UNK
     Route: 048
  8. FRANDOL [Concomitant]
     Dosage: UNK
     Route: 062
  9. UNSPECIFIED MEDICATION [Concomitant]
     Dosage: 0.2 MG, UNK
     Route: 048
  10. CELOOP [Concomitant]
     Indication: REFLUX OESOPHAGITIS
     Dosage: 150 MG
     Route: 048
     Dates: start: 20100119
  11. RESTREAM [Concomitant]
     Indication: BENIGN PROSTATIC HYPERPLASIA
     Dosage: 0.2 MG
     Route: 048
     Dates: start: 19990419
  12. ASPIRIN [Concomitant]
     Indication: ANGINA PECTORIS
     Dosage: 100 MG
     Dates: start: 20071214
  13. SELBEX [Concomitant]
     Indication: REFLUX OESOPHAGITIS
     Dosage: 3 DF
     Route: 048
     Dates: end: 20100119
  14. CRESTOR [Concomitant]
     Indication: HYPERLIPIDAEMIA
     Dosage: 2.5 MG
     Route: 048
     Dates: start: 20090512
  15. FRANDOL [Concomitant]
     Dosage: 40 MG
     Route: 062
     Dates: start: 19990415
  16. SENNOSIDE [Concomitant]
     Indication: CONSTIPATION
     Dosage: 24 MG
     Route: 048
     Dates: start: 20070731
  17. NORVASC [Concomitant]
     Indication: ESSENTIAL HYPERTENSION
     Dosage: 5 MG
     Route: 048
     Dates: start: 19990415, end: 20100119
  18. DIART [Concomitant]
     Dosage: 30 MG
     Route: 048
     Dates: start: 20100216
  19. TANATRIL [Concomitant]
     Dosage: 10 MG
     Route: 048
     Dates: start: 20100216
  20. NITOROL [Concomitant]
     Dosage: 15 MG
     Route: 048
     Dates: start: 20100216

REACTIONS (3)
  - CARDIAC FAILURE CONGESTIVE [None]
  - DYSPNOEA [None]
  - LEFT VENTRICULAR HYPERTROPHY [None]
